FAERS Safety Report 6303782-7 (Version None)
Quarter: 2009Q3

REPORT INFORMATION
  Report Type: 
  Country: None (occurrence: None)
  Receive Date: 20090805
  Receipt Date: 20090724
  Transmission Date: 20100115
  Serious: Yes (Hospitalization)
  Sender: FDA-Public Use
  Company Number: TCI2009A02925

PATIENT

DRUGS (4)
  1. ACTOS [Suspect]
     Dosage: 15 MG (15 MG,1 D) PER ORAL ; 30 MG (30 MG,1 D) PER ORAL
     Route: 048
     Dates: end: 20090506
  2. ACTOS [Suspect]
     Dosage: 15 MG (15 MG,1 D) PER ORAL ; 30 MG (30 MG,1 D) PER ORAL
     Route: 048
     Dates: start: 20090507, end: 20090723
  3. DIART (AZOSEMIDE) [Concomitant]
  4. SEIBULE (MIGLITOL) [Concomitant]

REACTIONS (2)
  - OEDEMA PERIPHERAL [None]
  - PYREXIA [None]
